FAERS Safety Report 7810963-X (Version None)
Quarter: 2011Q4

REPORT INFORMATION
  Report Type: 
  Country: None (occurrence: None)
  Receive Date: 20111013
  Receipt Date: 20111003
  Transmission Date: 20120403
  Serious: Yes (Other)
  Sender: FDA-Public Use
  Company Number: US-MYLANLABS-2011S1018925

PATIENT
  Age: 23 Year
  Sex: Female
  Weight: 74.84 kg

DRUGS (4)
  1. NEURONTIN [Concomitant]
  2. EMSAM [Suspect]
     Indication: DEPRESSION
     Route: 062
     Dates: start: 20110726, end: 20110728
  3. EMSAM [Suspect]
     Indication: ANXIETY
     Route: 062
     Dates: start: 20110726, end: 20110728
  4. BACLOFEN [Concomitant]

REACTIONS (2)
  - APPLICATION SITE RASH [None]
  - ANGIOEDEMA [None]
